FAERS Safety Report 8479165-0 (Version None)
Quarter: 2012Q2

REPORT INFORMATION
  Report Type: 
  Country: None (occurrence: None)
  Receive Date: 20120629
  Receipt Date: 20120619
  Transmission Date: 20120825
  Serious: Yes (Hospitalization, Other)
  Sender: FDA-Public Use
  Company Number: US-VERTEX PHARMACEUTICALS INC.-AE-2012-009222

PATIENT
  Age: 70 Year
  Sex: Male
  Weight: 81.72 kg

DRUGS (3)
  1. INCIVEK [Suspect]
     Indication: HEPATITIS C
     Route: 048
     Dates: start: 20120301, end: 20120422
  2. RIBAVIRIN [Concomitant]
     Indication: HEPATITIS C
     Dates: start: 20120301, end: 20120422
  3. PEGASYS [Concomitant]
     Indication: HEPATITIS C
     Dates: start: 20120301, end: 20120422

REACTIONS (6)
  - BLOOD COUNT ABNORMAL [None]
  - APHTHOUS STOMATITIS [None]
  - PNEUMONIA [None]
  - ORAL CANDIDIASIS [None]
  - HAEMOPTYSIS [None]
  - ASTHENIA [None]
